FAERS Safety Report 25424688 (Version 2)
Quarter: 2025Q2

REPORT INFORMATION
  Report Type: Spontaneous
  Country: US (occurrence: US)
  Receive Date: 20250611
  Receipt Date: 20250612
  Transmission Date: 20250716
  Serious: No
  Sender: PFIZER
  Company Number: US-PFIZER INC-202500119040

PATIENT
  Age: 58 Year
  Sex: Female

DRUGS (12)
  1. IBRANCE [Suspect]
     Active Substance: PALBOCICLIB
     Route: 048
     Dates: start: 20200812
  2. FASLODEX [Concomitant]
     Active Substance: FULVESTRANT
  3. IMITREX [Concomitant]
     Active Substance: SUMATRIPTAN SUCCINATE
  4. CHLORHEXIDINE GLUCONATE [Concomitant]
     Active Substance: CHLORHEXIDINE GLUCONATE
  5. LETROZOLE [Concomitant]
     Active Substance: LETROZOLE
  6. VITAMIN D NOS [Concomitant]
     Active Substance: CHOLECALCIFEROL\ERGOCALCIFEROL
  7. SELENIUM [Concomitant]
     Active Substance: SELENIUM
  8. IBUPROFEN [Concomitant]
     Active Substance: IBUPROFEN
  9. LOSARTAN POTASSIUM [Concomitant]
     Active Substance: LOSARTAN POTASSIUM
  10. METFORMIN [Concomitant]
     Active Substance: METFORMIN HYDROCHLORIDE
  11. VERZENIO [Concomitant]
     Active Substance: ABEMACICLIB
  12. XGEVA [Concomitant]
     Active Substance: DENOSUMAB

REACTIONS (2)
  - Dry mouth [Unknown]
  - Nausea [Unknown]
